FAERS Safety Report 6089615-5 (Version None)
Quarter: 2009Q1

REPORT INFORMATION
  Report Type: 
  Country: None (occurrence: None)
  Receive Date: 20090219
  Receipt Date: 20090219
  Transmission Date: 20090719
  Serious: Yes (Death)
  Sender: FDA-Public Use
  Company Number: None

PATIENT
  Age: 75 Year
  Sex: Female
  Weight: 54.4316 kg

DRUGS (2)
  1. HEPARIN [Suspect]
     Indication: HAEMODIALYSIS
     Dates: start: 20051020, end: 20080211
  2. HEPARIN [Suspect]
     Indication: PERITONEAL DIALYSIS
     Dates: start: 20051020, end: 20080211

REACTIONS (16)
  - ABDOMINAL PAIN [None]
  - ACTIVITIES OF DAILY LIVING IMPAIRED [None]
  - ASTHENIA [None]
  - COLD SWEAT [None]
  - CONFUSIONAL STATE [None]
  - DIARRHOEA [None]
  - DYSPNOEA [None]
  - GAIT DISTURBANCE [None]
  - GENERAL PHYSICAL HEALTH DETERIORATION [None]
  - MALAISE [None]
  - MYOCARDIAL INFARCTION [None]
  - OXYGEN SATURATION DECREASED [None]
  - PERITONITIS [None]
  - PROCEDURAL HYPOTENSION [None]
  - PRODUCT CONTAMINATION [None]
  - RESTLESSNESS [None]
